FAERS Safety Report 22347168 (Version 2)
Quarter: 2024Q2

REPORT INFORMATION
  Report Type: Spontaneous
  Country: US (occurrence: US)
  Receive Date: 20230520
  Receipt Date: 20240504
  Transmission Date: 20240716
  Serious: Yes (Hospitalization, Other)
  Sender: FDA-Public Use
  Company Number: US-LUOXINA-LUX-2023-US-LIT-00016

PATIENT
  Age: 61 Year
  Sex: Female

DRUGS (5)
  1. ALBUTEROL SULFATE [Suspect]
     Active Substance: ALBUTEROL SULFATE
     Indication: Asthmatic crisis
  2. MAGNESIUM [Suspect]
     Active Substance: MAGNESIUM
     Indication: Asthmatic crisis
     Route: 042
  3. METHYLPREDNISOLONE [Suspect]
     Active Substance: METHYLPREDNISOLONE
     Indication: Asthmatic crisis
     Route: 042
  4. TIOTROPIUM BROMIDE [Suspect]
     Active Substance: TIOTROPIUM BROMIDE
     Indication: Asthmatic crisis
     Route: 065
  5. EPINEPHRINE [Suspect]
     Active Substance: EPINEPHRINE
     Indication: Asthmatic crisis
     Route: 065

REACTIONS (1)
  - Drug ineffective [Unknown]
